FAERS Safety Report 7244461-1 (Version None)
Quarter: 2011Q1

REPORT INFORMATION
  Report Type: 
  Country: None (occurrence: None)
  Receive Date: 20110125
  Receipt Date: 20110118
  Transmission Date: 20110831
  Serious: Yes (Other)
  Sender: FDA-Public Use
  Company Number: JP-PFIZER INC-2010109696

PATIENT
  Age: 85 Year
  Sex: Female

DRUGS (19)
  1. ALENDRONATE SODIUM [Concomitant]
     Dosage: UNK
  2. ISOSORBIDE MONONITRATE [Concomitant]
     Indication: ANGINA PECTORIS
     Dosage: 20 MG, 2X/DAY
     Route: 048
     Dates: start: 20100706, end: 20101109
  3. PONTAL [Concomitant]
     Dosage: UNK
  4. LIPITOR [Suspect]
     Indication: LACUNAR INFARCTION
  5. ASPIRIN [Concomitant]
     Dosage: UNK
  6. TAKEPRON [Concomitant]
     Dosage: UNK
  7. AMLODIPINE [Concomitant]
     Dosage: UNK
  8. OMEPRAZOLE [Concomitant]
     Indication: REFLUX OESOPHAGITIS
     Dosage: 10 MG, 1X/DAY
     Route: 048
     Dates: start: 20091215, end: 20100302
  9. ARTIST [Concomitant]
     Indication: ANGINA PECTORIS
     Dosage: 10 MG, 1X/DAY
     Route: 048
     Dates: start: 20091215, end: 20100622
  10. MUCOSTA [Concomitant]
     Route: 048
  11. LIMAPROST [Concomitant]
     Dosage: UNK
     Route: 048
  12. LOXONIN [Concomitant]
     Dosage: UNK
     Route: 048
  13. TIZANIDINE HYDROCHLORIDE [Concomitant]
     Dosage: UNK
  14. PLAVIX [Concomitant]
     Dosage: UNK
  15. NATEGLINIDE [Concomitant]
     Dosage: UNK
  16. HALCION [Concomitant]
     Dosage: UNK
     Route: 048
  17. LIPITOR [Suspect]
     Indication: HYPERLIPIDAEMIA
     Dosage: 10 MG, 1X/DAY
     Route: 048
     Dates: start: 20070613, end: 20100831
  18. PRAVASTATIN SODIUM [Concomitant]
     Dosage: UNK
     Dates: end: 20070401
  19. SELOKEN [Concomitant]
     Dosage: UNK

REACTIONS (2)
  - HYPERKALAEMIA [None]
  - HYPONATRAEMIA [None]
